FAERS Safety Report 12484486 (Version 1)
Quarter: 2016Q2

REPORT INFORMATION
  Report Type: Report from Study
  Country: BR (occurrence: BR)
  Receive Date: 20160621
  Receipt Date: 20160621
  Transmission Date: 20160815
  Serious: Yes (Hospitalization)
  Sender: FDA-Public Use
  Company Number: PHHY2016BR084291

PATIENT
  Sex: Female
  Weight: 98 kg

DRUGS (3)
  1. DIOVAN [Suspect]
     Active Substance: VALSARTAN
     Indication: HYPERTENSION
     Dosage: 160 MG, PRN
     Route: 048
  2. BRASART [Suspect]
     Active Substance: VALSARTAN
     Indication: BLOOD PRESSURE ABNORMAL
     Dosage: 160 MG, PRN (2 TABLETS)
     Route: 065
  3. VENALOT /00843801/ [Suspect]
     Active Substance: COUMARIN\TROXERUTIN
     Indication: CARDIOVASCULAR DISORDER
     Route: 065

REACTIONS (12)
  - Cough [Unknown]
  - Blood pressure increased [Unknown]
  - Malaise [Unknown]
  - Respiratory failure [Unknown]
  - Urinary incontinence [Unknown]
  - Asthma [Unknown]
  - Salivary gland enlargement [Unknown]
  - Swollen tongue [Unknown]
  - Memory impairment [Unknown]
  - Sialoadenitis [Unknown]
  - Dyspnoea [Unknown]
  - Cyanosis [Unknown]
